FAERS Safety Report 23089313 (Version 1)
Quarter: 2023Q4

REPORT INFORMATION
  Report Type: Spontaneous
  Country: US (occurrence: None)
  Receive Date: 20231019
  Receipt Date: 20231019
  Transmission Date: 20240110
  Serious: No
  Sender: FDA-Public Use
  Company Number: None

PATIENT
  Age: 73 Year
  Sex: Male

DRUGS (1)
  1. MYOBLOC [Suspect]
     Active Substance: RIMABOTULINUMTOXINB
     Dosage: OTHER QUANTITY : 5000 UNITS;?OTHER FREQUENCY : OTHER;?
     Route: 030
     Dates: start: 202301

REACTIONS (1)
  - Death [None]

NARRATIVE: CASE EVENT DATE: 20230711
